FAERS Safety Report 23703568 (Version 3)
Quarter: 2024Q2

REPORT INFORMATION
  Report Type: Report from Study
  Country: US (occurrence: US)
  Receive Date: 20240403
  Receipt Date: 20240611
  Transmission Date: 20240715
  Serious: Yes (Hospitalization, Other)
  Sender: FDA-Public Use
  Company Number: US-002147023-NVSC2022US136781

PATIENT
  Sex: Female
  Weight: 62.585 kg

DRUGS (10)
  1. TREPROSTINIL [Suspect]
     Active Substance: TREPROSTINIL
     Dosage: 124.5 NG/KG/MIN, CONT
     Route: 042
     Dates: start: 20190624
  2. TREPROSTINIL [Suspect]
     Active Substance: TREPROSTINIL
     Indication: Pulmonary arterial hypertension
     Dosage: 124.5 NG/KG/MIN, CONT
     Route: 042
     Dates: start: 20190624
  3. TREPROSTINIL [Suspect]
     Active Substance: TREPROSTINIL
     Dosage: 124.5 NG/KG/MIN, CONT
     Route: 042
     Dates: start: 20190624
  4. TREPROSTINIL [Suspect]
     Active Substance: TREPROSTINIL
     Dosage: 124.5 NG/KG/MIN, CONT
     Route: 042
     Dates: start: 20190624
  5. TREPROSTINIL [Suspect]
     Active Substance: TREPROSTINIL
     Dosage: 124.5 NG/KG/MIN, CONT
     Route: 042
     Dates: start: 20190624
  6. TREPROSTINIL [Suspect]
     Active Substance: TREPROSTINIL
     Dosage: 124.5 NG/KG/MIN, CONTINUOUS
     Route: 042
     Dates: start: 20190624
  7. TREPROSTINIL [Suspect]
     Active Substance: TREPROSTINIL
     Dosage: 124.5 NG/KG/ M I N
     Route: 042
     Dates: start: 20230624
  8. REMODULIN [Concomitant]
     Active Substance: TREPROSTINIL
     Indication: Product used for unknown indication
     Dosage: UNK
     Route: 065
  9. REVATIO [Concomitant]
     Active Substance: SILDENAFIL CITRATE
     Indication: Product used for unknown indication
     Dosage: UNK
     Route: 065
  10. TRACLEER [Concomitant]
     Active Substance: BOSENTAN
     Indication: Product used for unknown indication
     Dosage: UNK
     Route: 065

REACTIONS (8)
  - COVID-19 [Unknown]
  - Pneumonia [Unknown]
  - Coagulopathy [Unknown]
  - Back pain [Unknown]
  - Malaise [Unknown]
  - Chest pain [Unknown]
  - Catheter site haemorrhage [Unknown]
  - Emotional distress [Unknown]
